FAERS Safety Report 5886764-9 (Version None)
Quarter: 2008Q3

REPORT INFORMATION
  Report Type: 
  Country: None (occurrence: None)
  Receive Date: 20080917
  Receipt Date: 20080916
  Transmission Date: 20090109
  Serious: Yes (Hospitalization)
  Sender: FDA-Public Use
  Company Number: FR-BRISTOL-MYERS SQUIBB COMPANY-14337521

PATIENT
  Age: 79 Year
  Sex: Female

DRUGS (10)
  1. APROVEL TABS 150 MG [Suspect]
     Dates: end: 20080325
  2. RILMENIDINE [Suspect]
     Dates: end: 20080320
  3. PROPRANOLOL HYDROCHLORIDE [Suspect]
     Dates: end: 20080322
  4. NIFEDIPINE [Concomitant]
  5. PRAVASTATIN [Concomitant]
     Dosage: TAKEN IN EVENING
  6. TEGRETOL [Concomitant]
     Dosage: 1/2 IN MORNING AND 1/2 IN EVENING
  7. TRIMEBUTINE [Concomitant]
     Dosage: IN THE MORNING AND IN THE EVENING
  8. PROTELOS [Concomitant]
  9. OSTRAM D3 [Concomitant]
  10. STABLON [Concomitant]
     Dosage: 1 IN THE MORNING AND IN THE EVENING

REACTIONS (2)
  - FALL [None]
  - ORTHOSTATIC HYPOTENSION [None]
